FAERS Safety Report 8163497-X (Version None)
Quarter: 2012Q1

REPORT INFORMATION
  Report Type: 
  Country: None (occurrence: None)
  Receive Date: 20120224
  Receipt Date: 20120213
  Transmission Date: 20120608
  Serious: Yes (Disabling)
  Sender: FDA-Public Use
  Company Number: AU-MERCK-1202USA01792

PATIENT
  Sex: Male

DRUGS (2)
  1. NOROXIN [Suspect]
     Route: 048
  2. METRONIDAZOLE [Suspect]
     Route: 048

REACTIONS (1)
  - SKIN EXFOLIATION [None]
